FAERS Safety Report 14518903 (Version 1)
Quarter: 2018Q1

REPORT INFORMATION
  Report Type: Report from Study
  Country: PL (occurrence: PL)
  Receive Date: 20180212
  Receipt Date: 20180212
  Transmission Date: 20180509
  Serious: Yes (Other)
  Sender: FDA-Public Use
  Company Number: PL-PFIZER INC-2018053980

PATIENT
  Age: 59 Year
  Sex: Male
  Weight: 108 kg

DRUGS (3)
  1. DEXAMETHASONE. [Concomitant]
     Active Substance: DEXAMETHASONE
     Indication: PLASMA CELL MYELOMA
     Dosage: UNSPECIFIED
     Route: 065
     Dates: start: 20151027, end: 20151218
  2. DOXORUBICIN HCL [Suspect]
     Active Substance: DOXORUBICIN HYDROCHLORIDE
     Indication: PLASMA CELL MYELOMA
     Dosage: INJECTION
     Route: 065
     Dates: start: 20151027, end: 20151218
  3. BORTEZOMIB HOSPIRA [Suspect]
     Active Substance: BORTEZOMIB
     Indication: PLASMA CELL MYELOMA
     Dosage: LYOPHILIZED POWDER
     Route: 065
     Dates: start: 20151027, end: 20151218

REACTIONS (1)
  - Polyneuropathy [Unknown]
